FAERS Safety Report 8980143 (Version 2)
Quarter: 2013Q1

REPORT INFORMATION
  Report Type: Spontaneous
  Country: US (occurrence: US)
  Receive Date: 20121221
  Receipt Date: 20130109
  Transmission Date: 20140127
  Serious: Yes (Other)
  Sender: FDA-Public Use
  Company Number: PHEH2012US024670

PATIENT
  Age: 54 Year
  Sex: Male
  Weight: 70.7 kg

DRUGS (5)
  1. GLEEVEC [Suspect]
     Indication: GASTROINTESTINAL STROMAL TUMOUR
     Dosage: 600 MG, UNK
     Route: 048
     Dates: start: 2001
  2. LASIX [Concomitant]
  3. VITAMIN B12 [Concomitant]
  4. MACRODANTIN [Concomitant]
  5. CO Q 10 [Concomitant]

REACTIONS (3)
  - Intestinal polyp [Unknown]
  - Dysplasia [Not Recovered/Not Resolved]
  - Metastases to liver [Unknown]
